FAERS Safety Report 11399024 (Version 1)
Quarter: 2015Q3

REPORT INFORMATION
  Report Type: Spontaneous
  Country: NL (occurrence: NL)
  Receive Date: 20150820
  Receipt Date: 20150820
  Transmission Date: 20151125
  Serious: Yes (Other)
  Sender: FDA-Public Use
  Company Number: NL-ASTRAZENECA-2015SE79050

PATIENT
  Sex: Female

DRUGS (2)
  1. FASLODEX [Suspect]
     Active Substance: FULVESTRANT
     Indication: METASTATIC NEOPLASM
     Route: 030
     Dates: start: 20150731
  2. FASLODEX [Suspect]
     Active Substance: FULVESTRANT
     Indication: METASTATIC NEOPLASM
     Dosage: 50 MG/ML WWSP 5ML 2X, PER 4 WEEKS
     Route: 030
     Dates: start: 20150717

REACTIONS (1)
  - Hypercalcaemia [Unknown]
